FAERS Safety Report 5297492-5 (Version None)
Quarter: 2007Q2

REPORT INFORMATION
  Report Type: 
  Country: None (occurrence: None)
  Receive Date: 20070409
  Receipt Date: 20070328
  Transmission Date: 20071010
  Serious: Yes (Other)
  Sender: FDA-Public Use
  Company Number: T200700274

PATIENT
  Age: 22 Year
  Sex: Female
  Weight: 45 kg

DRUGS (1)
  1. OPTIRAY 300 [Suspect]
     Indication: SCAN BRAIN
     Dosage: 50 ML, SINGLE, INTRAVENOUS
     Route: 042
     Dates: start: 20070207, end: 20070207

REACTIONS (1)
  - ANAPHYLACTIC SHOCK [None]
